FAERS Safety Report 4455098-1 (Version None)
Quarter: 2004Q3

REPORT INFORMATION
  Report Type: 
  Country: None (occurrence: None)
  Receive Date: 20040917
  Receipt Date: 20040827
  Transmission Date: 20050211
  Serious: Yes (Hospitalization)
  Sender: FDA-Public Use
  Company Number: USA040874284

PATIENT
  Age: 72 Year
  Sex: Male
  Weight: 58 kg

DRUGS (13)
  1. ALIMTA [Suspect]
     Indication: PLEURAL MESOTHELIOMA MALIGNANT
     Dosage: 500 MGM2 OTHER
     Route: 050
     Dates: start: 20040702
  2. CISPLATIN [Concomitant]
  3. VVITAMIN B12 [Concomitant]
  4. MUTIVITAMIN [Concomitant]
  5. DEXAMETHASONE [Concomitant]
  6. DECADRON [Concomitant]
  7. ALOXI [Concomitant]
  8. LASIX [Concomitant]
  9. VERAPAMIL [Concomitant]
  10. OXYCONTIN [Concomitant]
  11. MIRALAX [Concomitant]
  12. PHENERGAN [Concomitant]
  13. MEGACE [Concomitant]

REACTIONS (4)
  - COMA [None]
  - INJECTION SITE CELLULITIS [None]
  - PULMONARY EMBOLISM [None]
  - SYNCOPE [None]
